FAERS Safety Report 19135697 (Version 1)
Quarter: 2021Q2

REPORT INFORMATION
  Report Type: Spontaneous
  Country: US (occurrence: US)
  Receive Date: 20210414
  Receipt Date: 20210414
  Transmission Date: 20210717
  Serious: Yes (Other)
  Sender: FDA-Public Use
  Company Number: US-SA-2021SA112533

PATIENT
  Age: 53 Year
  Sex: Female

DRUGS (4)
  1. METFORMIN [Concomitant]
     Active Substance: METFORMIN HYDROCHLORIDE
     Indication: BREAST CANCER FEMALE
     Dosage: UNK
     Dates: start: 2015
  2. PAROXETINE. [Concomitant]
     Active Substance: PAROXETINE
     Indication: BREAST CANCER FEMALE
     Dosage: UNK
     Dates: start: 2005
  3. TAXOTERE [Suspect]
     Active Substance: DOCETAXEL
     Indication: BREAST CANCER FEMALE
     Dosage: UNK UNK, Q3W
     Route: 065
     Dates: start: 2012, end: 2012
  4. BYDUREON [Concomitant]
     Active Substance: EXENATIDE
     Indication: BREAST CANCER FEMALE
     Dosage: UNK
     Dates: start: 2017

REACTIONS (2)
  - Psychological trauma [Unknown]
  - Alopecia [Not Recovered/Not Resolved]

NARRATIVE: CASE EVENT DATE: 2012
